FAERS Safety Report 8010684-7 (Version None)
Quarter: 2011Q4

REPORT INFORMATION
  Report Type: 
  Country: None (occurrence: None)
  Receive Date: 20111228
  Receipt Date: 20111222
  Transmission Date: 20120403
  Serious: Yes (Disabling, Other)
  Sender: FDA-Public Use
  Company Number: US-JNJFOC-20111210455

PATIENT
  Sex: Female
  Weight: 80.74 kg

DRUGS (8)
  1. DURAGESIC-100 [Suspect]
     Route: 062
  2. DURAGESIC-100 [Suspect]
     Route: 062
  3. UNSPECIFIED NARCOTIC [Suspect]
     Indication: PAIN
     Route: 065
  4. DURAGESIC-100 [Suspect]
     Route: 062
     Dates: start: 20050101
  5. DURAGESIC-100 [Suspect]
     Indication: INTERVERTEBRAL DISC DISORDER
     Route: 062
  6. DURAGESIC-100 [Suspect]
     Route: 062
  7. DURAGESIC-100 [Suspect]
     Route: 062
  8. DURAGESIC-100 [Suspect]
     Dosage: 50MCG+12.5MCG/ 1 IN 48 HOURS
     Route: 062

REACTIONS (8)
  - ERYTHEMA [None]
  - SKIN IRRITATION [None]
  - DRUG INEFFECTIVE [None]
  - WRONG TECHNIQUE IN DRUG USAGE PROCESS [None]
  - DISABILITY [None]
  - PAIN [None]
  - PRODUCT QUALITY ISSUE [None]
  - HYPERHIDROSIS [None]
